FAERS Safety Report 10574024 (Version 5)
Quarter: 2015Q2

REPORT INFORMATION
  Report Type: Report from Study
  Country: DE (occurrence: DE)
  Receive Date: 20141110
  Receipt Date: 20150601
  Transmission Date: 20150821
  Serious: Yes (Other)
  Sender: FDA-Public Use
  Company Number: PHHY2014DE145599

PATIENT
  Sex: Male
  Weight: 78 kg

DRUGS (2)
  1. ILARIS [Suspect]
     Active Substance: CANAKINUMAB
     Indication: CRYOPYRIN ASSOCIATED PERIODIC SYNDROME
     Dosage: 150 MG, UNK (EVERY 12 WEEKS)
     Route: 058
     Dates: start: 20100209
  2. ILARIS [Suspect]
     Active Substance: CANAKINUMAB
     Dosage: 150 MG, UNK
     Route: 058
     Dates: start: 20140416, end: 20140416

REACTIONS (1)
  - Necrotising ulcerative gingivostomatitis [Recovered/Resolved]

NARRATIVE: CASE EVENT DATE: 20140512
